FAERS Safety Report 22998496 (Version 2)
Quarter: 2023Q4

REPORT INFORMATION
  Report Type: Report from Study
  Country: US (occurrence: US)
  Receive Date: 20230928
  Receipt Date: 20231202
  Transmission Date: 20240109
  Serious: No
  Sender: FDA-Public Use
  Company Number: US-002147023-NVSC2023US204116

PATIENT
  Sex: Male
  Weight: 99.79 kg

DRUGS (2)
  1. COSENTYX [Suspect]
     Active Substance: SECUKINUMAB
     Indication: Product used for unknown indication
     Dosage: UNK
     Route: 065
     Dates: start: 2017
  2. HYDROCORTISONE [Suspect]
     Active Substance: HYDROCORTISONE
     Indication: Psoriasis
     Dosage: UNK
     Route: 065

REACTIONS (7)
  - Seborrhoeic dermatitis [Unknown]
  - Arthritis [Unknown]
  - Dry skin [Unknown]
  - Rash erythematous [Unknown]
  - Skin hyperpigmentation [Unknown]
  - Psoriasis [Unknown]
  - Drug ineffective [Unknown]
